FAERS Safety Report 7112219-X (Version None)
Quarter: 2010Q4

REPORT INFORMATION
  Report Type: 
  Country: None (occurrence: None)
  Receive Date: 20101119
  Receipt Date: 20100423
  Transmission Date: 20110411
  Serious: No
  Sender: FDA-Public Use
  Company Number: A0851142A

PATIENT
  Age: 67 Year
  Sex: Male

DRUGS (9)
  1. AVODART [Suspect]
     Dosage: 1CAP PER DAY
     Route: 048
  2. GLIPIZIDE [Concomitant]
  3. ACTOS [Concomitant]
  4. ENALAPRIL MALEATE [Concomitant]
  5. ALLOPURINOL [Concomitant]
  6. GABAPENTIN [Concomitant]
  7. METFORMIN HCL [Concomitant]
  8. UNKNOWN MEDICATION [Concomitant]
  9. ZETIA [Concomitant]

REACTIONS (3)
  - BREAST PAIN [None]
  - BREAST TENDERNESS [None]
  - MUSCULOSKELETAL CHEST PAIN [None]
